FAERS Safety Report 18856272 (Version 1)
Quarter: 2021Q1

REPORT INFORMATION
  Report Type: Other
  Country: CN (occurrence: CN)
  Receive Date: 20210207
  Receipt Date: 20210207
  Transmission Date: 20210420
  Serious: Yes (Other)
  Sender: FDA-Public Use
  Company Number: CN-ROCHE-2763141

PATIENT

DRUGS (5)
  1. BEVACIZUMAB. [Suspect]
     Active Substance: BEVACIZUMAB
     Indication: COLON CANCER
     Route: 041
  2. 5?FLUOROURACIL [Suspect]
     Active Substance: FLUOROURACIL
     Dosage: PUMPED CONTINUOUSLY FOR 48 HOURS, REPEATED FOR 2 WEEKS
     Route: 040
  3. 5?FLUOROURACIL [Suspect]
     Active Substance: FLUOROURACIL
     Indication: COLON CANCER
     Route: 040
  4. OXALIPLATIN. [Suspect]
     Active Substance: OXALIPLATIN
     Indication: COLON CANCER
     Route: 041
  5. CALCIUM FOLINATE [Suspect]
     Active Substance: LEUCOVORIN CALCIUM
     Indication: COLON CANCER
     Route: 041

REACTIONS (12)
  - Thrombocytopenia [Unknown]
  - Diarrhoea [Unknown]
  - Neurotoxicity [Unknown]
  - Vomiting [Unknown]
  - Nausea [Unknown]
  - Intestinal perforation [Unknown]
  - Mucosal inflammation [Unknown]
  - Neutropenia [Unknown]
  - Impaired healing [Unknown]
  - Febrile neutropenia [Unknown]
  - Anaemia [Unknown]
  - Fatigue [Unknown]
